FAERS Safety Report 7070349-5 (Version None)
Quarter: 2010Q4

REPORT INFORMATION
  Report Type: 
  Country: None (occurrence: None)
  Receive Date: 20101028
  Receipt Date: 20101019
  Transmission Date: 20110411
  Serious: No
  Sender: FDA-Public Use
  Company Number: US-WYE-H18240810

PATIENT
  Age: 62 Year
  Sex: Male

DRUGS (2)
  1. ADVIL [Suspect]
  2. DOANS PILLS [Interacting]

REACTIONS (2)
  - DRUG INTERACTION [None]
  - GASTRIC DISORDER [None]
